FAERS Safety Report 5045705-7 (Version None)
Quarter: 2006Q2

REPORT INFORMATION
  Report Type: 
  Country: None (occurrence: None)
  Receive Date: 20060601
  Receipt Date: 20060307
  Transmission Date: 20061013
  Serious: Yes (Other)
  Sender: FDA-Public Use
  Company Number: 144824USA

PATIENT
  Age: 23 Month
  Sex: Female
  Weight: 9.3 kg

DRUGS (2)
  1. FLUDARABINE [Suspect]
     Indication: ACUTE MYELOID LEUKAEMIA
     Dates: start: 20060303
  2. CYTARABINE [Concomitant]

REACTIONS (2)
  - HEPATOTOXICITY [None]
  - MEDICATION ERROR [None]
